FAERS Safety Report 5012045-1 (Version None)
Quarter: 2006Q2

REPORT INFORMATION
  Report Type: 
  Country: None (occurrence: None)
  Receive Date: 20060526
  Receipt Date: 20060523
  Transmission Date: 20061013
  Serious: Yes (Congenital Anomaly)
  Sender: FDA-Public Use
  Company Number: US-GLAXOSMITHKLINE-A0606978A

PATIENT

DRUGS (2)
  1. EPZICOM [Suspect]
     Indication: DRUG EXPOSURE DURING PREGNANCY
     Dosage: 1TAB PER DAY
  2. REYATAZ [Suspect]
     Indication: DRUG EXPOSURE DURING PREGNANCY
     Dosage: 400MG PER DAY

REACTIONS (3)
  - BONE DISORDER [None]
  - DRUG EXPOSURE DURING PREGNANCY [None]
  - TRISOMY 21 [None]
